FAERS Safety Report 26102214 (Version 1)
Quarter: 2025Q4

REPORT INFORMATION
  Report Type: Spontaneous
  Country: EU (occurrence: EU)
  Receive Date: 20251128
  Receipt Date: 20251128
  Transmission Date: 20260117
  Serious: Yes (Hospitalization)
  Sender: BAUSCH AND LOMB
  Company Number: None

PATIENT
  Age: 65 Year
  Sex: Female
  Weight: 40 kg

DRUGS (6)
  1. DEXAMETHASONE [Suspect]
     Active Substance: DEXAMETHASONE
     Indication: Product used for unknown indication
     Route: 042
     Dates: start: 20251016, end: 20251116
  2. DEXAMETHASONE [Suspect]
     Active Substance: DEXAMETHASONE
     Dosage: DOSE REINTRODUCED
     Route: 065
  3. DARATUMUMAB [Suspect]
     Active Substance: DARATUMUMAB
     Indication: Plasma cell myeloma
     Dosage: SCHEDULE: DARATUMUMAB IN COMBINATION WITH LENALIDOMIDE AND DEXAMETHASONE.?OCTOBER 16, 2025: FIRST AD
     Route: 058
     Dates: start: 20251016, end: 20251016
  4. DARATUMUMAB [Suspect]
     Active Substance: DARATUMUMAB
     Dosage: DOSE REINTRODUCED
     Route: 065
  5. OLANZAPINE [Concomitant]
     Active Substance: OLANZAPINE
     Indication: Product used for unknown indication
  6. TEGRETOL [Concomitant]
     Active Substance: CARBAMAZEPINE
     Indication: Product used for unknown indication

REACTIONS (3)
  - Dyspnoea [Recovering/Resolving]
  - Generalised tonic-clonic seizure [Recovering/Resolving]
  - Cardiac arrest [Recovering/Resolving]

NARRATIVE: CASE EVENT DATE: 20251016
